FAERS Safety Report 18850477 (Version 1)
Quarter: 2021Q1

REPORT INFORMATION
  Report Type: Report from Study
  Country: BR (occurrence: BR)
  Receive Date: 20210204
  Receipt Date: 20210204
  Transmission Date: 20210420
  Serious: Yes (Other)
  Sender: FDA-Public Use
  Company Number: NVSC2021BR019053

PATIENT
  Sex: Female

DRUGS (4)
  1. COSENTYX [Concomitant]
     Active Substance: SECUKINUMAB
     Indication: PRODUCT USED FOR UNKNOWN INDICATION
     Dosage: 300 MG (1 YEAR AGO)
     Route: 065
     Dates: start: 20201215
  2. METHOTREXATE. [Concomitant]
     Active Substance: METHOTREXATE
     Indication: PRODUCT USED FOR UNKNOWN INDICATION
     Route: 065
  3. COSENTYX [Concomitant]
     Active Substance: SECUKINUMAB
     Dosage: 150 MG
     Route: 065
     Dates: start: 20210121
  4. LEVOFLOXACIN. [Suspect]
     Active Substance: LEVOFLOXACIN
     Indication: ANTIBIOTIC THERAPY
     Route: 065

REACTIONS (7)
  - Ageusia [Recovering/Resolving]
  - Atrophic glossitis [Not Recovered/Not Resolved]
  - Tongue eruption [Recovering/Resolving]
  - Glossodynia [Recovering/Resolving]
  - Oral discomfort [Recovering/Resolving]
  - Drug hypersensitivity [Unknown]
  - Diabetes mellitus [Unknown]
